FAERS Safety Report 7293133-6 (Version None)
Quarter: 2011Q1

REPORT INFORMATION
  Report Type: 
  Country: None (occurrence: None)
  Receive Date: 20110210
  Receipt Date: 20110210
  Transmission Date: 20110831
  Serious: Yes (Hospitalization)
  Sender: FDA-Public Use
  Company Number: None

PATIENT
  Age: 36 Year
  Sex: Female
  Weight: 54.4316 kg

DRUGS (2)
  1. PAXIL [Suspect]
     Indication: DEPRESSION
     Dosage: 15MG ONCE AT NIGHT ENDOTRACHEAL
     Route: 007
     Dates: start: 20090714, end: 20110202
  2. PAXIL [Suspect]

REACTIONS (10)
  - ABDOMINAL PAIN [None]
  - INSOMNIA [None]
  - HEART RATE DECREASED [None]
  - TOOTH EXTRACTION [None]
  - WEIGHT DECREASED [None]
  - DIZZINESS [None]
  - MEDICAL DEVICE PAIN [None]
  - DIARRHOEA [None]
  - SYNCOPE [None]
  - CARDIAC PACEMAKER INSERTION [None]
